FAERS Safety Report 4476017-8 (Version None)
Quarter: 2004Q4

REPORT INFORMATION
  Report Type: 
  Country: None (occurrence: None)
  Receive Date: 20041012
  Receipt Date: 20040927
  Transmission Date: 20050328
  Serious: Yes (Other)
  Sender: FDA-Public Use
  Company Number: 2004235476US

PATIENT
  Age: 29 Year
  Sex: Female

DRUGS (6)
  1. DOXORUBICIN HYDROCHLORIDE [Suspect]
     Indication: NON-HODGKIN'S LYMPHOMA
     Dosage: UNK, CYCLE,
     Route: 065
  2. DELTASONE [Suspect]
     Indication: NON-HODGKIN'S LYMPHOMA
     Dosage: UNK, CYCLIC, UNKNOWN
     Route: 065
  3. PEGFILGRASTIM [Suspect]
     Dosage: 6 MG, 1 IN 3 WEEKS; CYCLIC; SUBCUTANEOUS
     Route: 058
     Dates: start: 20040623, end: 20040804
  4. RITUXAN [Suspect]
     Indication: NON-HODGKIN'S LYMPHOMA
     Dosage: UNK, CYCLE,
     Route: 065
  5. VINCRISTINE [Suspect]
     Indication: NON-HODGKIN'S LYMPHOMA
     Dosage: UNK, CYCLIC;
     Route: 065
  6. CYCLOPHOSPHAMIDE [Suspect]
     Indication: NON-HODGKIN'S LYMPHOMA
     Dosage: UNK, CYCLIC
     Route: 065

REACTIONS (1)
  - ALVEOLITIS ALLERGIC [None]
